FAERS Safety Report 9655902 (Version 2)
Quarter: 2013Q4

REPORT INFORMATION
  Report Type: Report from Study
  Country: FR (occurrence: FR)
  Receive Date: 20131030
  Receipt Date: 20131105
  Transmission Date: 20140711
  Serious: Yes (Life-Threatening)
  Sender: FDA-Public Use
  Company Number: FR-BRISTOL-MYERS SQUIBB COMPANY-19680008

PATIENT
  Age: 58 Year
  Sex: Female

DRUGS (1)
  1. ERBITUX SOLN FOR INF [Suspect]
     Indication: SQUAMOUS CELL CARCINOMA OF HEAD AND NECK
     Dosage: INF,LOADING DOSE: 400 MG ON 13MAY09,INF:09,RECENT ADM DATE:08JUL09
     Route: 042
     Dates: start: 20090513

REACTIONS (1)
  - Burkitt^s lymphoma [Not Recovered/Not Resolved]
